FAERS Safety Report 4873570-7 (Version None)
Quarter: 2005Q4

REPORT INFORMATION
  Report Type: 
  Country: None (occurrence: None)
  Receive Date: 20051201
  Receipt Date: 20050826
  Transmission Date: 20060501
  Serious: No
  Sender: FDA-Public Use
  Company Number: 2005PV001460

PATIENT
  Age: 60 Year
  Sex: Female
  Weight: 108.4097 kg

DRUGS (14)
  1. BYETTA [Suspect]
     Indication: DIABETES MELLITUS NON-INSULIN-DEPENDENT
     Dosage: 10 MCG;BID;SC; 5 MCG;BID;SC
     Route: 058
     Dates: start: 20050714, end: 20050808
  2. BYETTA [Suspect]
     Indication: DIABETES MELLITUS NON-INSULIN-DEPENDENT
     Dosage: 10 MCG;BID;SC; 5 MCG;BID;SC
     Route: 058
     Dates: start: 20050809
  3. METAGLIP [Concomitant]
  4. NASONEX [Concomitant]
  5. ZYRTEC [Concomitant]
  6. SINGULAIR [Concomitant]
  7. AMITREX LA [Concomitant]
  8. ZOCOR [Concomitant]
  9. LEXAPRO [Concomitant]
  10. MIRAPEX [Concomitant]
  11. PREVACID [Concomitant]
  12. LASIX [Concomitant]
  13. DIFLUCAN [Concomitant]
  14. ACTOS [Concomitant]

REACTIONS (1)
  - WEIGHT DECREASED [None]
